FAERS Safety Report 16348729 (Version 1)
Quarter: 2019Q2

REPORT INFORMATION
  Report Type: Spontaneous
  Country: GB (occurrence: GB)
  Receive Date: 20190523
  Receipt Date: 20190523
  Transmission Date: 20190711
  Serious: Yes (Other)
  Sender: FDA-Public Use
  Company Number: GB-MYLANLABS-2019M1047713

PATIENT
  Age: 42 Year
  Sex: Male
  Weight: 76 kg

DRUGS (5)
  1. TERBINAFINE. [Concomitant]
     Active Substance: TERBINAFINE
     Dosage: THINLY AS DIRECTED.
     Dates: start: 20180705, end: 20180817
  2. PAROXETINE. [Suspect]
     Active Substance: PAROXETINE
     Indication: PRODUCT USED FOR UNKNOWN INDICATION
     Dosage: 10 MILLIGRAM
  3. FLUOXETINE [Concomitant]
     Active Substance: FLUOXETINE HYDROCHLORIDE
     Dosage: 2 DOSAGE FORM, QOD
     Dates: start: 20180911, end: 20180912
  4. THIAMINE. [Concomitant]
     Active Substance: THIAMINE
     Dosage: IN THE MORNING
     Dates: start: 20180911, end: 20180912
  5. PROPRANOLOL [Concomitant]
     Active Substance: PROPRANOLOL HYDROCHLORIDE
     Dosage: IN THE MORNING.
     Dates: start: 20180911, end: 20180912

REACTIONS (2)
  - Gastrointestinal disorder [Recovered/Resolved]
  - Hypersensitivity [Unknown]
